FAERS Safety Report 9517146 (Version 1)
Quarter: 2013Q3

REPORT INFORMATION
  Report Type: Spontaneous
  Country: US (occurrence: US)
  Receive Date: 20130911
  Receipt Date: 20130911
  Transmission Date: 20140515
  Serious: No
  Sender: FDA-Public Use
  Company Number: US-PFIZER INC-2013258041

PATIENT
  Age: 3 Month
  Sex: Male
  Weight: 9.98 kg

DRUGS (2)
  1. CHILDREN^S MOTRIN [Suspect]
     Indication: PYREXIA
     Dosage: 5 ML, TWICE
     Route: 048
     Dates: start: 20130718, end: 20130719
  2. TYLENOL [Suspect]
     Dosage: 5 ML, UNK
     Dates: start: 2013

REACTIONS (2)
  - Incorrect dose administered [Recovered/Resolved]
  - Vomiting [Recovered/Resolved]
